FAERS Safety Report 6086863-5 (Version None)
Quarter: 2009Q1

REPORT INFORMATION
  Report Type: 
  Country: None (occurrence: None)
  Receive Date: 20090217
  Receipt Date: 20080926
  Transmission Date: 20090719
  Serious: Yes (Life-Threatening)
  Sender: FDA-Public Use
  Company Number: MC200800468

PATIENT
  Age: 80 Year
  Sex: Male
  Weight: 90.9 kg

DRUGS (4)
  1. ANGIOMAX [Suspect]
     Indication: PERCUTANEOUS CORONARY INTERVENTION
     Dosage: BOLUS, INTRAVENOUS : INTRAVENOUS
     Route: 040
     Dates: start: 20080926, end: 20080926
  2. ANGIOMAX [Suspect]
     Indication: STENT PLACEMENT
     Dosage: BOLUS, INTRAVENOUS : INTRAVENOUS
     Route: 040
     Dates: start: 20080926, end: 20080926
  3. PLAVIX [Concomitant]
  4. ASPIRIN [Concomitant]

REACTIONS (2)
  - CORONARY ARTERY THROMBOSIS [None]
  - THROMBOSIS IN DEVICE [None]
